FAERS Safety Report 20114419 (Version 1)
Quarter: 2021Q4

REPORT INFORMATION
  Report Type: Spontaneous
  Country: US (occurrence: None)
  Receive Date: 20211125
  Receipt Date: 20211125
  Transmission Date: 20220303
  Serious: No
  Sender: FDA-Public Use
  Company Number: 2021A824716

PATIENT
  Age: 17 Year
  Sex: Male
  Weight: 90.7 kg

DRUGS (1)
  1. PULMICORT TURBUHALER [Suspect]
     Active Substance: BUDESONIDE
     Indication: Asthma
     Route: 055
     Dates: start: 202111

REACTIONS (4)
  - Taste disorder [Not Recovered/Not Resolved]
  - Device failure [Unknown]
  - Wrong technique in product usage process [Unknown]
  - Product dose omission issue [Not Recovered/Not Resolved]

NARRATIVE: CASE EVENT DATE: 20211101
